FAERS Safety Report 19101410 (Version 1)
Quarter: 2021Q2

REPORT INFORMATION
  Report Type: Spontaneous
  Country: US (occurrence: US)
  Receive Date: 20210406
  Receipt Date: 20210406
  Transmission Date: 20210717
  Serious: Yes (Death)
  Sender: FDA-Public Use
  Company Number: None

PATIENT
  Age: 78 Year
  Sex: Female

DRUGS (7)
  1. EVEROLIMUS 5 MG TABLET [Suspect]
     Active Substance: EVEROLIMUS
     Route: 048
  2. DURAGESIC?12 [Concomitant]
  3. EXEMESTANE 25 MG TABLET [Suspect]
     Active Substance: EXEMESTANE
     Route: 048
  4. GABAPENTIN. [Concomitant]
     Active Substance: GABAPENTIN
  5. HYDROCODONE?ACETAMINOPHEN [Concomitant]
     Active Substance: ACETAMINOPHEN\HYDROCODONE
  6. FULVESTRANT. [Concomitant]
     Active Substance: FULVESTRANT
  7. LORAZEPAM. [Concomitant]
     Active Substance: LORAZEPAM

REACTIONS (1)
  - Death [None]

NARRATIVE: CASE EVENT DATE: 20210406
